FAERS Safety Report 12147183 (Version 2)
Quarter: 2016Q1

REPORT INFORMATION
  Report Type: Spontaneous
  Country: US (occurrence: US)
  Receive Date: 20160304
  Receipt Date: 20160324
  Transmission Date: 20160526
  Serious: No
  Sender: FDA-Public Use
  Company Number: US-PFIZER INC-2016138617

PATIENT
  Sex: Male

DRUGS (1)
  1. PRISTIQ EXTENDED RELEASE [Suspect]
     Active Substance: DESVENLAFAXINE SUCCINATE
     Dosage: UNK

REACTIONS (6)
  - Urticaria [Not Recovered/Not Resolved]
  - Panic attack [Unknown]
  - Irritability [Unknown]
  - Intentional product misuse [Unknown]
  - Insomnia [Unknown]
  - Drug hypersensitivity [Unknown]
